FAERS Safety Report 4883749-6 (Version None)
Quarter: 2006Q1

REPORT INFORMATION
  Report Type: 
  Country: None (occurrence: None)
  Receive Date: 20060118
  Receipt Date: 20051013
  Transmission Date: 20060701
  Serious: Yes (Hospitalization)
  Sender: FDA-Public Use
  Company Number: JP-ROCHE-421601

PATIENT
  Age: 46 Year
  Sex: Female

DRUGS (9)
  1. CAPECITABINE [Suspect]
     Indication: BREAST CANCER METASTATIC
     Dosage: THREE WEEKS ADMINISTRATION FOLLOWED BY ONE WEEK REST.
     Route: 048
     Dates: start: 20041004, end: 20041108
  2. CAPECITABINE [Suspect]
     Dosage: THREE WEEKS ADMINISTRATION FOLLOWED BY ONE WEEK REST.
     Route: 048
     Dates: start: 20041119, end: 20041210
  3. PREDONINE [Suspect]
     Indication: METASTASES TO LUNG
     Route: 048
     Dates: start: 20040726, end: 20041012
  4. PREDONINE [Suspect]
     Route: 048
     Dates: start: 20041013, end: 20050314
  5. LASIX [Concomitant]
     Dosage: BETWEEN 26 JULY 2004 AND 04 AUGUST 2004, 20 MG ONCE DAILY WERE ADMINISTERED, AND BETWEEN 05 AUGUST +
     Route: 048
     Dates: start: 20040726, end: 20050112
  6. LOXONIN [Concomitant]
     Route: 048
     Dates: start: 20040727, end: 20050112
  7. ALOTEC [Concomitant]
     Route: 048
     Dates: start: 20040804, end: 20050112
  8. GASTER [Concomitant]
     Route: 048
     Dates: start: 20041210, end: 20050112
  9. URSODESOXYCHOLIC ACID [Concomitant]
     Route: 048
     Dates: start: 20041210, end: 20050112

REACTIONS (5)
  - ALANINE AMINOTRANSFERASE INCREASED [None]
  - ASPARTATE AMINOTRANSFERASE INCREASED [None]
  - DYSPNOEA [None]
  - GAMMA-GLUTAMYLTRANSFERASE INCREASED [None]
  - HEPATIC FUNCTION ABNORMAL [None]
